FAERS Safety Report 9885579 (Version 2)
Quarter: 2014Q1

REPORT INFORMATION
  Report Type: Spontaneous
  Country: US (occurrence: US)
  Receive Date: 20140210
  Receipt Date: 20140328
  Transmission Date: 20141002
  Serious: Yes (Hospitalization, Other)
  Sender: FDA-Public Use
  Company Number: US-UCBSA-111408

PATIENT
  Age: 56 Year
  Sex: Male
  Weight: 112 kg

DRUGS (4)
  1. CIMZIA [Suspect]
     Indication: CROHN^S DISEASE
  2. CIMZIA [Suspect]
     Indication: CROHN^S DISEASE
  3. VITAMIN B12 [Concomitant]
  4. LEVAQUIN [Concomitant]
     Indication: RESPIRATORY SYNCYTIAL VIRUS INFECTION

REACTIONS (3)
  - Pneumonia [Recovered/Resolved]
  - Respiratory syncytial virus infection [Recovered/Resolved]
  - Pancreatitis [Recovered/Resolved]
